FAERS Safety Report 18565290 (Version 1)
Quarter: 2020Q4

REPORT INFORMATION
  Report Type: Report from Study
  Country: MX (occurrence: MX)
  Receive Date: 20201201
  Receipt Date: 20201201
  Transmission Date: 20210114
  Serious: Yes (Death)
  Sender: FDA-Public Use
  Company Number: MX-UCBSA-2019035832

PATIENT
  Sex: Male

DRUGS (12)
  1. GOICOECHEA PIEL NORMAL [Concomitant]
     Indication: DRY SKIN
     Dosage: UNK
  2. COMBODART [Concomitant]
     Active Substance: DUTASTERIDE\TAMSULOSIN
     Indication: UNEVALUABLE EVENT
     Dosage: UNK
  3. ROTIGOTINE [Suspect]
     Active Substance: ROTIGOTINE
     Indication: PARKINSON^S DISEASE
     Dosage: 4 MILLIGRAM, ONCE DAILY (QD)
     Route: 062
  4. LEVODOPA [Concomitant]
     Active Substance: LEVODOPA
     Indication: PARKINSON^S DISEASE
     Dosage: UNK
  5. MEMANTINE. [Concomitant]
     Active Substance: MEMANTINE
     Indication: DEMENTIA
     Dosage: UNK
  6. HALDOL [Concomitant]
     Active Substance: HALOPERIDOL
     Indication: SLEEP DISORDER
     Dosage: UNK
  7. SIBET [METFORMIN HYDROCHLORIDE] [Concomitant]
     Indication: DIABETES MELLITUS
     Dosage: UNK
  8. GLIBENCLAMIDE [Concomitant]
     Active Substance: GLYBURIDE
     Indication: DIABETES MELLITUS
     Dosage: UNK
  9. ASPIRIN PROTEC [Concomitant]
     Active Substance: ASPIRIN
     Indication: MYOCARDIAL INFARCTION
     Dosage: UNK
  10. PRAMIPEXOLE. [Concomitant]
     Active Substance: PRAMIPEXOLE
     Indication: PARKINSON^S DISEASE
     Dosage: UNK
  11. TAMSULOSIN [Concomitant]
     Active Substance: TAMSULOSIN
     Indication: UNEVALUABLE EVENT
     Dosage: UNK
  12. CARBIDOPA AND LEVODOPA [Concomitant]
     Active Substance: CARBIDOPA\LEVODOPA
     Indication: PARKINSON^S DISEASE
     Dosage: UNK

REACTIONS (5)
  - Application site pruritus [Recovering/Resolving]
  - Death [Fatal]
  - Application site reaction [Recovering/Resolving]
  - Weight decreased [Recovered/Resolved]
  - Malnutrition [Recovered/Resolved]
